FAERS Safety Report 4675631-4 (Version None)
Quarter: 2005Q2

REPORT INFORMATION
  Report Type: 
  Country: None (occurrence: None)
  Receive Date: 20050525
  Receipt Date: 20050513
  Transmission Date: 20051028
  Serious: Yes (Hospitalization)
  Sender: FDA-Public Use
  Company Number: ACC000039

PATIENT
  Age: 73 Year
  Sex: Male
  Weight: 60 kg

DRUGS (1)
  1. SUPRANE [Suspect]
     Indication: ANAESTHESIA
     Dates: start: 20050325, end: 20050325

REACTIONS (2)
  - DISEASE RECURRENCE [None]
  - PNEUMOTHORAX [None]
